FAERS Safety Report 7512154-9 (Version None)
Quarter: 2011Q2

REPORT INFORMATION
  Report Type: 
  Country: None (occurrence: None)
  Receive Date: 20110524
  Receipt Date: 20110524
  Transmission Date: 20111010
  Serious: Yes (Other)
  Sender: FDA-Public Use
  Company Number: None

PATIENT
  Sex: Female
  Weight: 79.3795 kg

DRUGS (2)
  1. ANTISEPTIC ALCOHOL SWAB (ISOPROPYL ALCOHOL) [Suspect]
     Indication: PREOPERATIVE CARE
     Dosage: 1 PREP PAD 3 TMES A DAY TOP
     Route: 061
     Dates: start: 20090101, end: 20110522
  2. ANTISEPTIC ALCOHOL SWAB (ISOPROPYL ALCOHOL) [Suspect]
     Indication: LABORATORY TEST
     Dosage: 1 PREP PAD 3 TMES A DAY TOP
     Route: 061
     Dates: start: 20090101, end: 20110522

REACTIONS (1)
  - SKIN EXFOLIATION [None]
